FAERS Safety Report 19647334 (Version 1)
Quarter: 2021Q3

REPORT INFORMATION
  Report Type: Report from Study
  Country: FR (occurrence: FR)
  Receive Date: 20210802
  Receipt Date: 20210802
  Transmission Date: 20211014
  Serious: Yes (Hospitalization, Other)
  Sender: FDA-Public Use
  Company Number: FR-PFIZER INC-202100926083

PATIENT
  Age: 63 Year
  Sex: Female

DRUGS (6)
  1. CYTARABINE. [Suspect]
     Active Substance: CYTARABINE
     Indication: ACUTE MYELOID LEUKAEMIA
     Dosage: 320 MG
     Dates: start: 20210210, end: 20210216
  2. RYDAPT [Suspect]
     Active Substance: MIDOSTAURIN
     Indication: ACUTE MYELOID LEUKAEMIA
     Dosage: 100 MG
     Dates: start: 20210217, end: 20210302
  3. DAUNORUBICIN [Suspect]
     Active Substance: DAUNORUBICIN
     Indication: ACUTE MYELOID LEUKAEMIA
     Dosage: 95 MG
     Dates: start: 20210210, end: 20210212
  4. AMBISOME [Concomitant]
     Active Substance: AMPHOTERICIN B
     Dosage: UNK
  5. VANCOMYCIN [Concomitant]
     Active Substance: VANCOMYCIN
     Dosage: UNK
  6. TIENAM [Concomitant]
     Active Substance: CILASTATIN SODIUM\IMIPENEM
     Dosage: UNK

REACTIONS (10)
  - Febrile neutropenia [Unknown]
  - Ear pain [Unknown]
  - Ear swelling [Unknown]
  - Pyrexia [Unknown]
  - Cellulitis [Unknown]
  - Erythema [Unknown]
  - Bone marrow failure [Unknown]
  - Otitis externa [Recovered/Resolved]
  - Febrile bone marrow aplasia [Unknown]
  - Infection [Unknown]

NARRATIVE: CASE EVENT DATE: 20210302
